FAERS Safety Report 7047438-4 (Version None)
Quarter: 2010Q4

REPORT INFORMATION
  Report Type: 
  Country: None (occurrence: None)
  Receive Date: 20101015
  Receipt Date: 20101014
  Transmission Date: 20110411
  Serious: Yes (Disabling, Other)
  Sender: FDA-Public Use
  Company Number: JP-EISAI INC.-E2020-06785-CLI-JP

PATIENT
  Sex: Female
  Weight: 44 kg

DRUGS (5)
  1. ARICEPT [Suspect]
     Route: 048
     Dates: start: 20080817, end: 20100512
  2. FUROSEMIDE [Concomitant]
     Dosage: 20 MG X 1
     Route: 048
  3. SALIPEX [Concomitant]
     Dosage: 80MG X 1
     Route: 048
  4. MAGLAX [Concomitant]
     Route: 048
  5. YOUPIS [Concomitant]
     Route: 048

REACTIONS (1)
  - NECK DEFORMITY [None]
